FAERS Safety Report 22283025 (Version 1)
Quarter: 2023Q2

REPORT INFORMATION
  Report Type: Spontaneous
  Country: US (occurrence: US)
  Receive Date: 20230504
  Receipt Date: 20230504
  Transmission Date: 20230722
  Serious: No
  Sender: FDA-Public Use
  Company Number: US-ELI_LILLY_AND_COMPANY-US202305001713

PATIENT
  Sex: Male

DRUGS (1)
  1. BASAGLAR [Suspect]
     Active Substance: INSULIN GLARGINE
     Indication: Glucose tolerance impaired
     Dosage: 45 U, UNKNOWN
     Route: 065

REACTIONS (2)
  - Tremor [Not Recovered/Not Resolved]
  - Weight increased [Unknown]
